FAERS Safety Report 15340259 (Version 1)
Quarter: 2018Q3

REPORT INFORMATION
  Report Type: Spontaneous
  Country: US (occurrence: US)
  Receive Date: 20180831
  Receipt Date: 20180831
  Transmission Date: 20181010
  Serious: Yes (Hospitalization, Other)
  Sender: FDA-Public Use
  Company Number: US-OTSUKA-2018_026118

PATIENT
  Age: 40 Year
  Sex: Female

DRUGS (4)
  1. ABILIFY [Suspect]
     Active Substance: ARIPIPRAZOLE
     Indication: ADJUVANT THERAPY
     Dosage: 20 MG, QD
     Route: 065
     Dates: end: 201504
  2. ABILIFY [Suspect]
     Active Substance: ARIPIPRAZOLE
     Indication: MAJOR DEPRESSION
     Dosage: 10 MG, QD
     Route: 065
  3. ABILIFY [Suspect]
     Active Substance: ARIPIPRAZOLE
     Indication: BIPOLAR DISORDER
     Dosage: 5 MG, QD
     Route: 065
     Dates: start: 2002
  4. ABILIFY [Suspect]
     Active Substance: ARIPIPRAZOLE
     Indication: POST-TRAUMATIC STRESS DISORDER

REACTIONS (17)
  - Mental disorder [Unknown]
  - Anhedonia [Unknown]
  - Gambling disorder [Unknown]
  - Economic problem [Unknown]
  - Eating disorder [Unknown]
  - Pain [Unknown]
  - Loss of employment [Unknown]
  - Emotional distress [Unknown]
  - Anxiety [Unknown]
  - Obsessive-compulsive disorder [Unknown]
  - Suicide attempt [Unknown]
  - Divorced [Unknown]
  - Injury [Unknown]
  - Suicidal ideation [Unknown]
  - Product use in unapproved indication [Unknown]
  - Bankruptcy [Unknown]
  - Compulsive shopping [Unknown]

NARRATIVE: CASE EVENT DATE: 2002
